FAERS Safety Report 12438247 (Version 1)
Quarter: 2016Q2

REPORT INFORMATION
  Report Type: Report from Study
  Country: BR (occurrence: BR)
  Receive Date: 20160606
  Receipt Date: 20160606
  Transmission Date: 20160815
  Serious: Yes (Other)
  Sender: FDA-Public Use
  Company Number: PHHY2016BR077358

PATIENT
  Sex: Female
  Weight: 68 kg

DRUGS (1)
  1. SANDOSTATIN LAR DEPOT [Suspect]
     Active Substance: OCTREOTIDE ACETATE
     Indication: ACROMEGALY
     Dosage: 30 MG, UNK
     Route: 030
     Dates: end: 201509

REACTIONS (8)
  - Fatigue [Not Recovered/Not Resolved]
  - Diarrhoea [Unknown]
  - Cough [Unknown]
  - Pyrexia [Unknown]
  - Bone pain [Unknown]
  - Hypokinesia [Unknown]
  - Immunodeficiency [Unknown]
  - Viral infection [Unknown]
